FAERS Safety Report 10272528 (Version 1)
Quarter: 2014Q2

REPORT INFORMATION
  Report Type: Spontaneous
  Country: US (occurrence: None)
  Receive Date: 20140627
  Receipt Date: 20140627
  Transmission Date: 20141212
  Serious: Yes (Other)
  Sender: FDA-Public Use
  Company Number: C14 036 AE

PATIENT
  Age: 83 Year
  Sex: Female

DRUGS (1)
  1. FIRST-MOUTHWASH BLM [Suspect]
     Indication: APHTHOUS STOMATITIS
     Route: 048
     Dates: start: 20140424

REACTIONS (1)
  - Swollen tongue [None]
